FAERS Safety Report 19896055 (Version 2)
Quarter: 2021Q4

REPORT INFORMATION
  Report Type: Spontaneous
  Country: US (occurrence: US)
  Receive Date: 20210929
  Receipt Date: 20211007
  Transmission Date: 20220303
  Serious: No
  Sender: FDA-Public Use
  Company Number: US-GLAXOSMITHKLINE-USCH2021AMR065542

PATIENT
  Age: 21 Year
  Sex: Male
  Weight: 58.97 kg

DRUGS (3)
  1. IBUPROFEN [Suspect]
     Active Substance: IBUPROFEN
     Indication: Toothache
     Dosage: 3 DF, QD
     Route: 048
     Dates: start: 20210918
  2. NORCO [Suspect]
     Active Substance: ACETAMINOPHEN\HYDROCODONE BITARTRATE
     Indication: Toothache
     Dosage: 1 DF, QD
     Route: 048
     Dates: start: 20210918
  3. GABAPENTIN [Suspect]
     Active Substance: GABAPENTIN
     Indication: Toothache
     Dosage: 1 DF, QD
     Route: 048
     Dates: start: 20210918

REACTIONS (4)
  - Pyrexia [Unknown]
  - Vomiting [Unknown]
  - Illness [Unknown]
  - Incorrect dose administered [Unknown]

NARRATIVE: CASE EVENT DATE: 20210918
